FAERS Safety Report 25412859 (Version 3)
Quarter: 2025Q3

REPORT INFORMATION
  Report Type: Spontaneous
  Country: JP (occurrence: JP)
  Receive Date: 20250609
  Receipt Date: 20250809
  Transmission Date: 20251021
  Serious: Yes (Death, Other)
  Sender: ALEXION PHARMACEUTICALS
  Company Number: JP-ASTRAZENECA-250054388_011620_P_1

PATIENT
  Age: 71 Year
  Sex: Male

DRUGS (1)
  1. LYNPARZA [Suspect]
     Active Substance: OLAPARIB
     Indication: Hormone-refractory prostate cancer
     Dosage: 600 MILLIGRAM, BID

REACTIONS (5)
  - Metastases to bladder [Fatal]
  - Malaise [Unknown]
  - Nausea [Unknown]
  - Haemoglobin decreased [Unknown]
  - Prostatic specific antigen increased [Unknown]
